FAERS Safety Report 9847159 (Version 2)
Quarter: 2014Q1

REPORT INFORMATION
  Report Type: Spontaneous
  Country: US (occurrence: US)
  Receive Date: 20140127
  Receipt Date: 20140127
  Transmission Date: 20141002
  Serious: Yes (Other)
  Sender: FDA-Public Use
  Company Number: US-GE HEALTHCARE MEDICAL DIAGNOSTICS-OSCN-PR-0905S-0262

PATIENT
  Age: 57 Year
  Sex: Female
  Weight: 80.5 kg

DRUGS (11)
  1. OMNISCAN [Suspect]
     Indication: BREAST DISORDER
     Route: 042
     Dates: start: 20060630, end: 20060630
  2. OMNISCAN [Suspect]
     Indication: PAIN IN EXTREMITY
     Route: 042
     Dates: start: 20060630, end: 20060630
  3. OMNISCAN [Suspect]
     Indication: PARAESTHESIA
  4. GADOLINIUM (UNSPECIFIED) [Suspect]
     Indication: MEDICAL DEVICE COMPLICATION
     Route: 042
     Dates: start: 20020628, end: 20020628
  5. GADOLINIUM (UNSPECIFIED) [Suspect]
     Indication: NECK PAIN
     Route: 042
     Dates: start: 20040410, end: 20040410
  6. GADOLINIUM (UNSPECIFIED) [Suspect]
     Indication: ENDOCARDITIS
     Route: 042
     Dates: start: 20070426, end: 20070426
  7. GADOLINIUM (UNSPECIFIED) [Suspect]
     Indication: RENAL DISORDER
  8. MAGNEVIST [Suspect]
     Indication: INFECTION
     Route: 042
     Dates: start: 20040212, end: 20040212
  9. MAGNEVIST [Suspect]
     Indication: NECK PAIN
  10. WARFARIN [Concomitant]
     Indication: PRODUCT USED FOR UNKNOWN INDICATION
     Dates: start: 2000
  11. RENAGEL [Concomitant]
     Indication: PRODUCT USED FOR UNKNOWN INDICATION
     Dates: start: 20020528, end: 20081031

REACTIONS (1)
  - Nephrogenic systemic fibrosis [Not Recovered/Not Resolved]
